FAERS Safety Report 10963442 (Version 1)
Quarter: 2015Q1

REPORT INFORMATION
  Report Type: Spontaneous
  Country: US (occurrence: None)
  Receive Date: 20150226
  Receipt Date: 20150226
  Transmission Date: 20150721
  Serious: No
  Sender: FDA-Public Use
  Company Number: TPA2009A03871

PATIENT
  Age: 81 Year
  Sex: Female
  Weight: 63.05 kg

DRUGS (5)
  1. UNKNOWN POTASSIUM MEDICATION (ALL OTHER THERAPEUTIC PRODUCTS) [Concomitant]
  2. DARVOCET (DEXTROPROPOXYPHINE) [Concomitant]
  3. UNKNOWN BLOOD PRESSURE MEDICATION (ALL OTHER THERAPEUTIC PRODUCTS) [Concomitant]
  4. ULORIC [Suspect]
     Active Substance: FEBUXOSTAT
     Indication: GOUT
     Route: 048
     Dates: start: 200904, end: 2009
  5. UNSPECIFIED WATER PILLS (CAFFEINE, AMMONIUM CHLORIDE) [Concomitant]

REACTIONS (3)
  - Rash [None]
  - Condition aggravated [None]
  - Gout [None]

NARRATIVE: CASE EVENT DATE: 200904
